FAERS Safety Report 9302247 (Version 1)
Quarter: 2013Q2

REPORT INFORMATION
  Report Type: Report from Study
  Country: US (occurrence: US)
  Receive Date: 20130522
  Receipt Date: 20130522
  Transmission Date: 20140414
  Serious: Yes (Death)
  Sender: FDA-Public Use
  Company Number: US-ROCHE-1227367

PATIENT
  Sex: Male

DRUGS (2)
  1. AVASTIN [Suspect]
     Indication: PRODUCT USED FOR UNKNOWN INDICATION
     Dosage: LAST DOSE PRIOR TO SAE WAS ON 06/NOV/2012.
     Route: 042
  2. XELODA [Suspect]
     Indication: PRODUCT USED FOR UNKNOWN INDICATION
     Dosage: 4X500 MG AND 2X150 MG
     Route: 048

REACTIONS (1)
  - Death [Fatal]
